FAERS Safety Report 5736553-0 (Version None)
Quarter: 2008Q2

REPORT INFORMATION
  Report Type: 
  Country: None (occurrence: None)
  Receive Date: 20080513
  Receipt Date: 20080505
  Transmission Date: 20081010
  Serious: Yes (Other)
  Sender: FDA-Public Use
  Company Number: US-ELI_LILLY_AND_COMPANY-US200805001347

PATIENT
  Age: 39 Year
  Sex: Female

DRUGS (11)
  1. CYMBALTA [Suspect]
     Dosage: 60 MG, DAILY (1/D)
  2. FUROSEMIDE [Concomitant]
     Dosage: 40 MG, DAILY (1/D)
  3. CARVEDILOL [Concomitant]
     Dosage: 12.5 MG, 2/D
  4. CARVEDILOL [Concomitant]
     Dosage: 25 MG, 2/D
  5. SPIRONOLACTONE [Concomitant]
     Dosage: 25 MG, DAILY (1/D)
  6. LISINOPRIL [Concomitant]
     Dosage: 10 MG, 2/D
  7. ALPRAZOLAM [Concomitant]
     Dosage: 0.25 MG, AS NEEDED
  8. RIZATRIPTAN BENZOATE [Concomitant]
     Dosage: 5 MG, AS NEEDED
  9. TRIAMCINOLONE [Concomitant]
     Dosage: 1 D/F, UNK
  10. FEXOFENADINE [Concomitant]
     Dosage: 180 MG, DAILY (1/D)
  11. DICYCLOMINE [Concomitant]
     Dosage: 10 MG, OTHER

REACTIONS (4)
  - CARDIAC FAILURE [None]
  - DRUG INTERACTION [None]
  - SLEEP DISORDER [None]
  - TACHYCARDIA [None]
